FAERS Safety Report 9688322 (Version 1)
Quarter: 2013Q4

REPORT INFORMATION
  Report Type: Spontaneous
  Country: BR (occurrence: BR)
  Receive Date: 20131114
  Receipt Date: 20131114
  Transmission Date: 20140711
  Serious: Yes (Death)
  Sender: FDA-Public Use
  Company Number: BR-B.I. PHARMACEUTICALS,INC./RIDGEFIELD-2013-BI-37135BR

PATIENT
  Age: 89 Year
  Sex: Male

DRUGS (4)
  1. TRAYENTA [Suspect]
     Indication: DIABETES MELLITUS
     Route: 048
     Dates: end: 20131014
  2. PROPRANOLOL [Concomitant]
     Route: 048
  3. ACETYLSALICYLIC ACID [Concomitant]
     Indication: ANTICOAGULANT THERAPY
     Route: 048
  4. LIMIPIRIDA [Concomitant]
     Route: 048

REACTIONS (1)
  - Acute myocardial infarction [Fatal]
